FAERS Safety Report 21423163 (Version 1)
Quarter: 2022Q4

REPORT INFORMATION
  Report Type: Spontaneous
  Country: US (occurrence: None)
  Receive Date: 20221006
  Receipt Date: 20221006
  Transmission Date: 20230113
  Serious: Yes (Hospitalization)
  Sender: FDA-Public Use
  Company Number: None

PATIENT
  Sex: Male

DRUGS (1)
  1. MYCOPHENOLATE MOFETIL [Suspect]
     Active Substance: MYCOPHENOLATE MOFETIL
     Indication: Renal transplant
     Dosage: 250 MG ORAL??TAKE 4 CAPSULES (1,000 MG TOTAL) BY MOUTH EVERY 12 HOURS.
     Route: 048
     Dates: start: 20150729

REACTIONS (1)
  - Cellulitis [None]
